FAERS Safety Report 5694481-3 (Version None)
Quarter: 2008Q2

REPORT INFORMATION
  Report Type: 
  Country: None (occurrence: None)
  Receive Date: 20080404
  Receipt Date: 20080325
  Transmission Date: 20081010
  Serious: Yes (Hospitalization)
  Sender: FDA-Public Use
  Company Number: FR-ELI_LILLY_AND_COMPANY-FR200802005536

PATIENT
  Age: 74 Year
  Sex: Female
  Weight: 65 kg

DRUGS (8)
  1. FORTEO [Suspect]
     Indication: OSTEOPOROSIS
     Dosage: 20 UG, DAILY (1/D)
     Route: 058
     Dates: start: 20061213
  2. LEVOTHYROXINE SODIUM [Concomitant]
     Dosage: 100 UG, UNK
     Route: 048
  3. EFFEXOR [Concomitant]
     Indication: DEPRESSION
     Dosage: 1 D/F, DAILY (1/D)
     Route: 048
  4. SECTRAL [Concomitant]
     Dosage: 200 MG, DAILY (1/D)
     Route: 048
  5. EXELON [Concomitant]
     Dosage: 3 D/F, DAILY (1/D)
     Route: 048
  6. METEOXANE [Concomitant]
     Dosage: 2 D/F, DAILY (1/D)
     Route: 048
  7. DEDROGYL [Concomitant]
  8. STILNOX [Concomitant]

REACTIONS (3)
  - FALL [None]
  - VITAMIN D DEFICIENCY [None]
  - WRIST FRACTURE [None]
